FAERS Safety Report 4941737-5 (Version None)
Quarter: 2006Q1

REPORT INFORMATION
  Report Type: 
  Country: None (occurrence: None)
  Receive Date: 20060313
  Receipt Date: 20060120
  Transmission Date: 20060701
  Serious: Yes (Other)
  Sender: FDA-Public Use
  Company Number: US-GILEAD-2006-0009133

PATIENT
  Sex: Male

DRUGS (6)
  1. TRUVADA [Suspect]
     Dates: start: 20060107
  2. SUSTIVA [Suspect]
     Dates: start: 20060107
  3. AMLODIPINE [Concomitant]
     Indication: HYPERTENSION
  4. GABAPENTIN [Concomitant]
     Indication: NEUROPATHY
  5. TAMSULOSIN HCL [Concomitant]
     Indication: BENIGN PROSTATIC HYPERPLASIA
  6. METOPROLOL [Concomitant]
     Indication: HYPERTENSION

REACTIONS (3)
  - DRUG PRESCRIBING ERROR [None]
  - HEADACHE [None]
  - HYPERTENSION [None]
